FAERS Safety Report 6425131-6 (Version None)
Quarter: 2009Q4

REPORT INFORMATION
  Report Type: 
  Country: None (occurrence: None)
  Receive Date: 20091103
  Receipt Date: 20091027
  Transmission Date: 20100525
  Serious: Yes (Other)
  Sender: FDA-Public Use
  Company Number: US-ASTRAZENECA-2009SE22888

PATIENT
  Age: 16 Year
  Sex: Female
  Weight: 113.4 kg

DRUGS (4)
  1. SEROQUEL [Suspect]
     Indication: BIPOLAR DISORDER
     Route: 048
     Dates: start: 20090801, end: 20090901
  2. SEROQUEL [Suspect]
     Route: 048
     Dates: start: 20090901
  3. DEPAKOTE [Concomitant]
  4. SYNTHROID [Concomitant]

REACTIONS (3)
  - INTENTIONAL SELF-INJURY [None]
  - THYROID CANCER [None]
  - THYROID FUNCTION TEST ABNORMAL [None]
